FAERS Safety Report 8191848-9 (Version None)
Quarter: 2012Q1

REPORT INFORMATION
  Report Type: 
  Country: None (occurrence: None)
  Receive Date: 20120307
  Receipt Date: 20120228
  Transmission Date: 20120608
  Serious: Yes (Hospitalization)
  Sender: FDA-Public Use
  Company Number: PHEH2012US004780

PATIENT
  Sex: Female
  Weight: 52.063 kg

DRUGS (4)
  1. FOLIC ACID [Concomitant]
     Dosage: 1 MG, DAILY
  2. EXJADE [Suspect]
     Indication: SICKLE CELL ANAEMIA
     Dosage: 1500 MG, QD
     Route: 048
  3. COLACE [Concomitant]
     Indication: CONSTIPATION
     Dosage: 100 MG, PRN
  4. MORPHINE SULFATE [Concomitant]
     Dosage: 200 MG, Q12H

REACTIONS (8)
  - ANAEMIA [None]
  - CHEST PAIN [None]
  - LEUKOCYTOSIS [None]
  - SICKLE CELL ANAEMIA WITH CRISIS [None]
  - PNEUMONIA [None]
  - BACK PAIN [None]
  - DYSPNOEA [None]
  - CHEST DISCOMFORT [None]
